FAERS Safety Report 16889298 (Version 1)
Quarter: 2019Q4

REPORT INFORMATION
  Report Type: Spontaneous
  Country: IT (occurrence: IT)
  Receive Date: 20191007
  Receipt Date: 20191007
  Transmission Date: 20200122
  Serious: Yes (Other)
  Sender: FDA-Public Use
  Company Number: IT-TEVA-2019-IT-1117527

PATIENT
  Age: 68 Year
  Sex: Female

DRUGS (4)
  1. REPAGLINIDE. [Suspect]
     Active Substance: REPAGLINIDE
     Indication: DIABETES MELLITUS
     Dosage: 4 MG, 1 DAY
     Route: 048
  2. CATAPRESAN [Concomitant]
     Active Substance: CLONIDINE
  3. CARDIOASPIRIN [Concomitant]
     Active Substance: ASPIRIN
  4. TOTALIP [Concomitant]
     Active Substance: ATORVASTATIN

REACTIONS (3)
  - Hyperglycaemia [Recovering/Resolving]
  - Therapy non-responder [Recovering/Resolving]
  - Malaise [Recovering/Resolving]

NARRATIVE: CASE EVENT DATE: 20190227
